FAERS Safety Report 4459571-1 (Version None)
Quarter: 2004Q3

REPORT INFORMATION
  Report Type: 
  Country: None (occurrence: None)
  Receive Date: 20040910
  Receipt Date: 20040608
  Transmission Date: 20050211
  Serious: No
  Sender: FDA-Public Use
  Company Number: 2004217955US

PATIENT
  Age: 77 Year
  Sex: Female

DRUGS (1)
  1. BEXTRA [Suspect]
     Indication: GROIN PAIN
     Dosage: 20 MG, QD, UNK
     Dates: start: 20040604

REACTIONS (3)
  - CHEILITIS [None]
  - DRY SKIN [None]
  - PRURITUS [None]
